FAERS Safety Report 20890902 (Version 1)
Quarter: 2022Q2

REPORT INFORMATION
  Report Type: Spontaneous
  Country: DE (occurrence: None)
  Receive Date: 20220530
  Receipt Date: 20220530
  Transmission Date: 20220720
  Serious: Yes (Other)
  Sender: FDA-Public Use
  Company Number: 2022A193963

PATIENT
  Sex: Female

DRUGS (2)
  1. FULVESTRANT [Suspect]
     Active Substance: FULVESTRANT
     Indication: Metastases to liver
     Dosage: UNK
     Route: 065
     Dates: start: 202012, end: 202107
  2. ALPELISIB [Suspect]
     Active Substance: ALPELISIB
     Indication: Metastases to liver
     Dosage: UNK
     Route: 065
     Dates: start: 202012, end: 202107

REACTIONS (4)
  - Diabetes mellitus [Unknown]
  - Psoriasis [Unknown]
  - Fatigue [Unknown]
  - Pruritus [Unknown]
